FAERS Safety Report 5204837-0 (Version None)
Quarter: 2007Q1

REPORT INFORMATION
  Report Type: 
  Country: None (occurrence: None)
  Receive Date: 20070110
  Receipt Date: 20060830
  Transmission Date: 20070707
  Serious: Yes (Disabling, Other)
  Sender: FDA-Public Use
  Company Number: US-BRISTOL-MYERS SQUIBB COMPANY-13464144

PATIENT
  Age: 65 Year
  Sex: Female

DRUGS (5)
  1. ABILIFY [Suspect]
     Indication: MAJOR DEPRESSION
     Dosage: REDUCED TO 10 MG DAILY
     Route: 048
     Dates: end: 20060808
  2. ABILIFY [Suspect]
     Indication: PSYCHOTIC DISORDER
     Dosage: REDUCED TO 10 MG DAILY
     Route: 048
     Dates: end: 20060808
  3. KLONOPIN [Concomitant]
     Route: 048
  4. ZOLOFT [Concomitant]
     Route: 048
  5. ZYPREXA [Concomitant]
     Route: 048

REACTIONS (3)
  - AKATHISIA [None]
  - COGWHEEL RIGIDITY [None]
  - GAIT DISTURBANCE [None]
